FAERS Safety Report 8555959-8 (Version None)
Quarter: 2012Q3

REPORT INFORMATION
  Report Type: 
  Country: None (occurrence: None)
  Receive Date: 20120801
  Receipt Date: 20120723
  Transmission Date: 20120928
  Serious: Yes (Hospitalization)
  Sender: FDA-Public Use
  Company Number: US-009507513-1207USA010812

PATIENT

DRUGS (7)
  1. PLACEBO (UNSPECIFIED) [Suspect]
     Route: 048
  2. SAXAGLIPTIN [Suspect]
     Route: 048
  3. FENTANYL CITRATE [Suspect]
     Route: 062
  4. DIURETIC (UNSPECIFIED) [Concomitant]
  5. ASPIRIN [Concomitant]
  6. JANUVIA [Suspect]
     Route: 048
  7. METFORMIN HYDROCHLORIDE [Suspect]
     Route: 048

REACTIONS (7)
  - ANXIETY [None]
  - VOMITING [None]
  - PSYCHOTIC DISORDER [None]
  - PSYCHOSOMATIC DISEASE [None]
  - BLOOD GLUCOSE INCREASED [None]
  - HAEMOGLOBIN DECREASED [None]
  - ATRIAL FIBRILLATION [None]
